FAERS Safety Report 9681217 (Version 1)
Quarter: 2013Q4

REPORT INFORMATION
  Report Type: Spontaneous
  Country: DE (occurrence: DE)
  Receive Date: 20131111
  Receipt Date: 20131111
  Transmission Date: 20140711
  Serious: Yes (Life-Threatening, Hospitalization)
  Sender: FDA-Public Use
  Company Number: DE-TEVA-442696GER

PATIENT
  Age: 81 Year
  Sex: Female
  Weight: 70 kg

DRUGS (5)
  1. METFORMIN [Suspect]
     Indication: TYPE 2 DIABETES MELLITUS
     Dosage: 2000 MILLIGRAM DAILY;
     Route: 048
     Dates: end: 20130908
  2. RAMIPRIL [Concomitant]
     Dosage: 5 MILLIGRAM DAILY;
  3. SIMVASTATIN 20MG [Concomitant]
     Dosage: .5 DOSAGE FORMS DAILY;
  4. METOPROLOL 47.5MG RETARD [Concomitant]
     Dosage: 2 DOSAGE FORMS DAILY;
  5. TRIAMTEREN/HCT 50/25 MG [Concomitant]
     Dosage: 1 DOSAGE FORMS DAILY;

REACTIONS (2)
  - Lactic acidosis [Recovering/Resolving]
  - Renal failure acute [Recovering/Resolving]
